FAERS Safety Report 8574233-7 (Version None)
Quarter: 2012Q3

REPORT INFORMATION
  Report Type: 
  Country: None (occurrence: None)
  Receive Date: 20120806
  Receipt Date: 20120727
  Transmission Date: 20120928
  Serious: Yes (Hospitalization, Other)
  Sender: FDA-Public Use
  Company Number: DE-BAXTER-2012BAX013006

PATIENT
  Sex: Male
  Weight: 87 kg

DRUGS (2)
  1. ADVATE [Suspect]
     Route: 042
     Dates: start: 20110601, end: 20120704
  2. ADVATE [Suspect]
     Dates: start: 20061001

REACTIONS (2)
  - OSTEOCHONDROSIS [None]
  - FACTOR VIII INHIBITION [None]
